FAERS Safety Report 7027265-4 (Version None)
Quarter: 2010Q3

REPORT INFORMATION
  Report Type: 
  Country: None (occurrence: None)
  Receive Date: 20100930
  Receipt Date: 20100917
  Transmission Date: 20110219
  Serious: Yes (Other)
  Sender: FDA-Public Use
  Company Number: GB-1183451

PATIENT
  Sex: Female

DRUGS (1)
  1. AZOPT [Suspect]
     Dosage: OPHTHALMIC
     Route: 047
     Dates: start: 20100201

REACTIONS (3)
  - DISORIENTATION [None]
  - DIZZINESS [None]
  - VISUAL FIELD DEFECT [None]
